FAERS Safety Report 25358116 (Version 1)
Quarter: 2025Q2

REPORT INFORMATION
  Report Type: Spontaneous
  Country: US (occurrence: US)
  Receive Date: 20250526
  Receipt Date: 20250526
  Transmission Date: 20250716
  Serious: No
  Sender: RECKITT BENCKISER
  Company Number: US-PROD-AS2-212756134-20-24-USA-RB-0012262

PATIENT
  Age: 42 Year
  Sex: Male
  Weight: 67.132 kg

DRUGS (2)
  1. MUCINEX DM [Suspect]
     Active Substance: DEXTROMETHORPHAN HYDROBROMIDE\GUAIFENESIN
     Indication: Product used for unknown indication
     Route: 048
     Dates: start: 20241007
  2. OMEPRAZOLE [Concomitant]
     Active Substance: OMEPRAZOLE
     Indication: Product used for unknown indication
     Route: 065

REACTIONS (4)
  - Somnolence [Recovered/Resolved]
  - Head discomfort [Recovered/Resolved]
  - Lethargy [Recovering/Resolving]
  - Accidental overdose [Recovered/Resolved]

NARRATIVE: CASE EVENT DATE: 20241007
